FAERS Safety Report 13531855 (Version 2)
Quarter: 2017Q2

REPORT INFORMATION
  Report Type: Report from Study
  Country: JP (occurrence: JP)
  Receive Date: 20170510
  Receipt Date: 20170623
  Transmission Date: 20170830
  Serious: Yes (Hospitalization)
  Sender: FDA-Public Use
  Company Number: JP-ASTELLAS-2017JP008057AA

PATIENT
  Age: 63 Year
  Sex: Male
  Weight: 52 kg

DRUGS (11)
  1. ENZALUTAMIDE [Suspect]
     Active Substance: ENZALUTAMIDE
     Indication: HORMONE-REFRACTORY PROSTATE CANCER
     Route: 048
     Dates: start: 20160228, end: 20160309
  2. CALONAL [Concomitant]
     Active Substance: ACETAMINOPHEN
     Indication: CANCER PAIN
     Route: 048
  3. FAMOTIDINE. [Concomitant]
     Active Substance: FAMOTIDINE
     Indication: GASTROOESOPHAGEAL REFLUX DISEASE
     Route: 048
     Dates: end: 20160310
  4. LYRICA [Concomitant]
     Active Substance: PREGABALIN
     Indication: NEURALGIA
     Dosage: 75 MG, TWICE DAILY
     Route: 048
  5. FEBURIC [Concomitant]
     Active Substance: FEBUXOSTAT
     Indication: HYPERURICAEMIA
     Route: 048
  6. MAGNESIUM OXIDE. [Concomitant]
     Active Substance: MAGNESIUM OXIDE
     Indication: CONSTIPATION
     Route: 048
  7. PREDONINE [Suspect]
     Active Substance: PREDNISOLONE
     Indication: DECREASED APPETITE
     Route: 048
     Dates: end: 20160310
  8. LOXONIN [Suspect]
     Active Substance: LOXOPROFEN SODIUM
     Indication: CANCER PAIN
     Route: 048
     Dates: end: 20160310
  9. GONAX [Concomitant]
     Active Substance: DEGARELIX
     Indication: HORMONE-REFRACTORY PROSTATE CANCER
     Route: 065
     Dates: end: 20160312
  10. TAPENTADOL [Concomitant]
     Active Substance: TAPENTADOL
     Indication: CANCER PAIN
     Route: 048
  11. ENZALUTAMIDE [Suspect]
     Active Substance: ENZALUTAMIDE
     Route: 048
     Dates: start: 20160315, end: 20160412

REACTIONS (2)
  - Gastric ulcer [Recovering/Resolving]
  - Intentional underdose [Unknown]

NARRATIVE: CASE EVENT DATE: 20160228
